FAERS Safety Report 5654952-2 (Version None)
Quarter: 2008Q1

REPORT INFORMATION
  Report Type: 
  Country: None (occurrence: None)
  Receive Date: 20080307
  Receipt Date: 20071107
  Transmission Date: 20080703
  Serious: No
  Sender: FDA-Public Use
  Company Number: A0683824A

PATIENT
  Age: 80 Year
  Sex: Male

DRUGS (8)
  1. REQUIP [Suspect]
     Indication: RESTLESS LEGS SYNDROME
     Dosage: 4MG PER DAY
     Route: 048
     Dates: start: 20070101
  2. UNKNOWN MEDICATION [Concomitant]
  3. PLAVIX [Concomitant]
  4. LEVOTHYROXINE SODIUM [Concomitant]
  5. OMEPRAZOLE [Concomitant]
  6. METOPROLOL TARTRATE [Concomitant]
  7. LISINOPRIL [Concomitant]
  8. REQUIP [Concomitant]

REACTIONS (3)
  - IMPAIRED DRIVING ABILITY [None]
  - INSOMNIA [None]
  - SOMNOLENCE [None]
